FAERS Safety Report 6204400-9 (Version None)
Quarter: 2009Q2

REPORT INFORMATION
  Report Type: 
  Country: None (occurrence: None)
  Receive Date: 20090522
  Receipt Date: 20090512
  Transmission Date: 20091009
  Serious: Yes (Hospitalization)
  Sender: FDA-Public Use
  Company Number: 1000005278

PATIENT
  Age: 68 Year
  Sex: Male
  Weight: 95 kg

DRUGS (5)
  1. NEBIVOLOL HCL [Suspect]
     Indication: HYPERTENSION
     Dosage: 20 MG (20 MG, 1 IN 1 D), ORAL, 40 M G (40 MG, 1 IN 1 D), ORAL
     Route: 048
     Dates: start: 20081211, end: 20090304
  2. NEBIVOLOL HCL [Suspect]
     Indication: HYPERTENSION
     Dosage: 20 MG (20 MG, 1 IN 1 D), ORAL, 40 M G (40 MG, 1 IN 1 D), ORAL
     Route: 048
     Dates: start: 20090305, end: 20090308
  3. LOSARTAN POTASSIUM [Suspect]
     Indication: HYPERTENSION
     Dosage: 50 MG (50 MG, 1 IN 1 D), ORAL
     Route: 048
     Dates: start: 20081114, end: 20090308
  4. ASPIRIN [Concomitant]
  5. CRESTOR [Concomitant]

REACTIONS (9)
  - ANGINA UNSTABLE [None]
  - ARTERIAL STENOSIS [None]
  - ARTHRALGIA [None]
  - BLOOD PRESSURE SYSTOLIC INCREASED [None]
  - CORONARY ARTERY STENOSIS [None]
  - FATIGUE [None]
  - MYODESOPSIA [None]
  - SINUS BRADYCARDIA [None]
  - VISUAL IMPAIRMENT [None]
